FAERS Safety Report 18901741 (Version 2)
Quarter: 2021Q1

REPORT INFORMATION
  Report Type: Spontaneous
  Country: US (occurrence: US)
  Receive Date: 20210216
  Receipt Date: 20210317
  Transmission Date: 20210420
  Serious: Yes (Other)
  Sender: FDA-Public Use
  Company Number: US-MYLANLABS-2021M1007482

PATIENT
  Age: 81 Year
  Sex: Female
  Weight: 67 kg

DRUGS (7)
  1. DACOGEN [Concomitant]
     Active Substance: DECITABINE
     Dosage: FIVE?DAY INFUSION /MONTH; THEN OFF FOR THREE WEEKS
     Route: 042
  2. OMEPRAZOLE. [Concomitant]
     Active Substance: OMEPRAZOLE
     Dosage: 20 MILLIGRAM, PRN
  3. FUROSEMIDE TABLETS USP [Suspect]
     Active Substance: FUROSEMIDE
     Indication: DIURETIC THERAPY
     Dosage: 20 MILLIGRAM, QD
     Route: 048
  4. METOPROLOL SUCCINATE. [Concomitant]
     Active Substance: METOPROLOL SUCCINATE
     Dosage: 50 MILLIGRAM, BID
  5. FUROSEMIDE TABLETS USP [Suspect]
     Active Substance: FUROSEMIDE
     Indication: FLUID RETENTION
  6. APRISO [Concomitant]
     Active Substance: MESALAMINE
     Dosage: TAKE FOUR 0.375 G AM
  7. PRAVASTATIN. [Concomitant]
     Active Substance: PRAVASTATIN
     Dosage: AT BEDTIME, 20 MILLIGRAM PM

REACTIONS (8)
  - Platelet count decreased [Not Recovered/Not Resolved]
  - Haemolytic anaemia [Unknown]
  - Leukopenia [Unknown]
  - Anaemia [Unknown]
  - Eosinophilia [Unknown]
  - Thrombocytopenia [Unknown]
  - Agranulocytosis [Unknown]
  - Aplastic anaemia [Unknown]

NARRATIVE: CASE EVENT DATE: 20210129
